FAERS Safety Report 7076703-X (Version None)
Quarter: 2010Q4

REPORT INFORMATION
  Report Type: 
  Country: None (occurrence: None)
  Receive Date: 20101101
  Receipt Date: 20101026
  Transmission Date: 20110411
  Serious: No
  Sender: FDA-Public Use
  Company Number: US-PFIZER INC-2010098059

PATIENT
  Sex: Male

DRUGS (1)
  1. TIKOSYN [Suspect]
     Dosage: UNK

REACTIONS (2)
  - COUGH [None]
  - NASOPHARYNGITIS [None]
